FAERS Safety Report 7347566-X (Version None)
Quarter: 2011Q1

REPORT INFORMATION
  Report Type: 
  Country: None (occurrence: None)
  Receive Date: 20110311
  Receipt Date: 20110307
  Transmission Date: 20110831
  Serious: Yes (Death, Other)
  Sender: FDA-Public Use
  Company Number: PHHY2011US18838

PATIENT

DRUGS (8)
  1. LISINOPRIL [Concomitant]
     Dosage: UNK
  2. DIGOXIN [Concomitant]
     Dosage: UNK
  3. METOPROLOL [Concomitant]
     Dosage: 50 MG, BID
  4. CELECOXIB [Concomitant]
     Dosage: UNK
  5. METHOTREXATE [Interacting]
     Dosage: UNK MG, UNK
  6. NAPROXEN SODIUM [Interacting]
     Dosage: 550 MG, BID
  7. FUROSEMIDE [Concomitant]
     Dosage: UNK
  8. PARACETAMOL [Suspect]
     Dosage: 650 MG, BID

REACTIONS (5)
  - HAEMORRHAGE [None]
  - DRUG CLEARANCE DECREASED [None]
  - DRUG INTERACTION [None]
  - WEIGHT INCREASED [None]
  - OEDEMA [None]
